FAERS Safety Report 8954539 (Version 1)
Quarter: 2012Q4

REPORT INFORMATION
  Report Type: Spontaneous
  Country: US (occurrence: None)
  Receive Date: 20121205
  Receipt Date: 20121205
  Transmission Date: 20130627
  Serious: Yes (Other)
  Sender: FDA-Public Use
  Company Number: None

PATIENT
  Sex: Female
  Weight: 58.97 kg

DRUGS (2)
  1. METRONIDAZOL [Suspect]
     Indication: CLOSTRIDIUM DIFFICILE INFECTION
     Dosage: for 14 days - take 1 3x daily
     Dates: start: 20120908, end: 20120909
  2. METRONIDAZOL [Suspect]
     Indication: CLOSTRIDIUM DIFFICILE INFECTION
     Dates: start: 20120924, end: 20120929

REACTIONS (4)
  - Nausea [None]
  - Vision blurred [None]
  - Neuropathy peripheral [None]
  - Chills [None]
